FAERS Safety Report 4381866-0 (Version None)
Quarter: 2004Q2

REPORT INFORMATION
  Report Type: 
  Country: None (occurrence: None)
  Receive Date: 20040610
  Receipt Date: 20040217
  Transmission Date: 20050107
  Serious: No
  Sender: FDA-Public Use
  Company Number: A03200400480

PATIENT
  Age: 66 Year
  Sex: Female
  Weight: 63.5036 kg

DRUGS (4)
  1. ELOXATIN [Suspect]
     Indication: COLORECTAL CANCER
     Dosage: INTRAVENOUS NOS
     Route: 042
     Dates: start: 20040205, end: 20040205
  2. ELOXATIN [Suspect]
     Indication: METASTASES TO LIVER
     Dosage: INTRAVENOUS NOS
     Route: 042
     Dates: start: 20040205, end: 20040205
  3. FLUOROURACIL [Concomitant]
  4. LEUCOVORIN [Concomitant]

REACTIONS (8)
  - DEHYDRATION [None]
  - DYSPHEMIA [None]
  - EPISTAXIS [None]
  - EYELID DISORDER [None]
  - GAIT DISTURBANCE [None]
  - MUSCLE CRAMP [None]
  - PARAESTHESIA [None]
  - PARAESTHESIA ORAL [None]
